FAERS Safety Report 15113691 (Version 2)
Quarter: 2018Q3

REPORT INFORMATION
  Report Type: Report from Study
  Country: DE (occurrence: DE)
  Receive Date: 20180706
  Receipt Date: 20180911
  Transmission Date: 20181010
  Serious: No
  Sender: FDA-Public Use
  Company Number: DE-ROCHE-2091662

PATIENT
  Age: 48 Year
  Sex: Male

DRUGS (6)
  1. CANDESARTAN. [Concomitant]
     Active Substance: CANDESARTAN
     Dosage: 14?16 MG
     Route: 065
  2. ZOPICLON [Concomitant]
     Active Substance: ZOPICLONE
     Route: 065
  3. PARACETAMOL [Concomitant]
     Active Substance: ACETAMINOPHEN
     Route: 065
  4. OCREVUS [Suspect]
     Active Substance: OCRELIZUMAB
     Indication: MULTIPLE SCLEROSIS
     Route: 042
     Dates: start: 20180305
  5. DULOXETINE. [Concomitant]
     Active Substance: DULOXETINE
     Route: 065
  6. IBUPROFEN. [Concomitant]
     Active Substance: IBUPROFEN
     Dosage: 600?800 MG
     Route: 065

REACTIONS (5)
  - Nasopharyngitis [Recovered/Resolved]
  - Rash erythematous [Recovered/Resolved]
  - Arthralgia [Not Recovered/Not Resolved]
  - Myalgia [Not Recovered/Not Resolved]
  - Abnormal behaviour [Recovered/Resolved]

NARRATIVE: CASE EVENT DATE: 20180305
